FAERS Safety Report 7811321-4 (Version None)
Quarter: 2011Q4

REPORT INFORMATION
  Report Type: 
  Country: None (occurrence: None)
  Receive Date: 20111012
  Receipt Date: 20111012
  Transmission Date: 20120403
  Serious: Yes (Disabling)
  Sender: FDA-Public Use
  Company Number: None

PATIENT
  Sex: Male
  Weight: 77.1115 kg

DRUGS (1)
  1. BETASERON [Suspect]
     Indication: MULTIPLE SCLEROSIS
     Dosage: 0.25 ML (2 WEEKS) 0.50 ML ( 2 WEEKS) 1 X PER 48 HOURS 1X PER 48 HOURS SUBCUTANEOUS INJECTION 0.75 ML
     Route: 058
     Dates: start: 20070801, end: 20070901

REACTIONS (1)
  - HYPOAESTHESIA [None]
